FAERS Safety Report 21883952 (Version 1)
Quarter: 2023Q1

REPORT INFORMATION
  Report Type: Spontaneous
  Country: CA (occurrence: CA)
  Receive Date: 20230119
  Receipt Date: 20230119
  Transmission Date: 20230417
  Serious: Yes (Other)
  Sender: FDA-Public Use
  Company Number: CA-BAYER-2023A002311

PATIENT
  Age: 33 Year
  Sex: Female

DRUGS (1)
  1. MIRENA [Suspect]
     Active Substance: LEVONORGESTREL
     Dosage: 20?G/DAY
     Route: 015
     Dates: start: 201808

REACTIONS (5)
  - Seizure [None]
  - Renal impairment [None]
  - Blood follicle stimulating hormone decreased [None]
  - Blood luteinising hormone decreased [None]
  - Vitamin D decreased [None]

NARRATIVE: CASE EVENT DATE: 20220901
